FAERS Safety Report 7603189-6 (Version None)
Quarter: 2011Q3

REPORT INFORMATION
  Report Type: 
  Country: None (occurrence: None)
  Receive Date: 20110711
  Receipt Date: 20110711
  Transmission Date: 20111222
  Serious: Yes (Hospitalization)
  Sender: FDA-Public Use
  Company Number: None

PATIENT
  Sex: Female
  Weight: 147.3 kg

DRUGS (1)
  1. PROLASTIN-C [Suspect]
     Indication: ALPHA-1 ANTI-TRYPSIN DEFICIENCY
     Dosage: 900MG Q WEEK IV
     Route: 042
     Dates: start: 20110701

REACTIONS (4)
  - SKIN DISCOLOURATION [None]
  - NAUSEA [None]
  - HEADACHE [None]
  - TREMOR [None]
